FAERS Safety Report 4498499-8 (Version None)
Quarter: 2004Q4

REPORT INFORMATION
  Report Type: 
  Country: None (occurrence: None)
  Receive Date: 20041105
  Receipt Date: 20041006
  Transmission Date: 20050328
  Serious: Yes (Death)
  Sender: FDA-Public Use
  Company Number: 2004S1000217

PATIENT
  Age: 52 Year
  Sex: Male
  Weight: 90 kg

DRUGS (7)
  1. CUBICIN [Suspect]
     Indication: PERITONEAL ABSCESS
     Dosage: 4 MG/KG; Q24H;IV
     Route: 042
     Dates: start: 20041002, end: 20041001
  2. LINEZOLID [Concomitant]
  3. SYNERCID [Concomitant]
  4. MORPHINE [Concomitant]
  5. FENTANYL [Concomitant]
  6. PROPOFOL [Concomitant]
  7. MIDAZOLAM HCL [Concomitant]

REACTIONS (4)
  - DISSEMINATED INTRAVASCULAR COAGULATION [None]
  - MUSCLE RIGIDITY [None]
  - SEPSIS [None]
  - TREMOR [None]
